FAERS Safety Report 19829732 (Version 1)
Quarter: 2021Q3

REPORT INFORMATION
  Report Type: Spontaneous
  Country: US (occurrence: US)
  Receive Date: 20210914
  Receipt Date: 20210914
  Transmission Date: 20211014
  Serious: No
  Sender: FDA-Public Use
  Company Number: None

PATIENT
  Age: 58 Year
  Sex: Female
  Weight: 64.3 kg

DRUGS (1)
  1. REMICADE [Suspect]
     Active Substance: INFLIXIMAB
     Indication: RHEUMATOID ARTHRITIS
     Dosage: ?          OTHER FREQUENCY:INDUCTION;?
     Route: 041
     Dates: start: 20210309

REACTIONS (5)
  - Flushing [None]
  - Eye irritation [None]
  - Nausea [None]
  - Chest discomfort [None]
  - Vomiting [None]

NARRATIVE: CASE EVENT DATE: 20210422
